FAERS Safety Report 5669118-X (Version None)
Quarter: 2008Q1

REPORT INFORMATION
  Report Type: 
  Country: None (occurrence: None)
  Receive Date: 20080317
  Receipt Date: 20080310
  Transmission Date: 20080703
  Serious: Yes (Life-Threatening, Other)
  Sender: FDA-Public Use
  Company Number: US-GENENTECH-256980

PATIENT
  Sex: Female
  Weight: 116 kg

DRUGS (3)
  1. XOLAIR [Suspect]
     Indication: ASTHMA
     Dosage: 300 MG, Q4W
     Route: 058
     Dates: start: 20080114
  2. AZMACORT [Concomitant]
     Indication: ASTHMA
     Dosage: 4 PUFF, BID
     Dates: start: 20071107
  3. ZYRTEC [Concomitant]
     Indication: HYPERSENSITIVITY
     Dosage: 10 MG, BID
     Route: 048
     Dates: start: 20071101

REACTIONS (1)
  - ANAPHYLACTIC REACTION [None]
